FAERS Safety Report 18728744 (Version 1)
Quarter: 2021Q1

REPORT INFORMATION
  Report Type: Spontaneous
  Country: US (occurrence: US)
  Receive Date: 20210111
  Receipt Date: 20210111
  Transmission Date: 20210419
  Serious: No
  Sender: FDA-Public Use
  Company Number: None

PATIENT
  Age: 71 Year
  Sex: Female
  Weight: 72.57 kg

DRUGS (5)
  1. VITAMIN SUPPLEMENT [Concomitant]
     Active Substance: VITAMINS
  2. AMLODIPINE [Suspect]
     Active Substance: AMLODIPINE BESYLATE
  3. THYROXIN [Concomitant]
     Active Substance: LEVOTHYROXINE
  4. BABY ASPIRIN [Concomitant]
     Active Substance: ASPIRIN
  5. ADVIL [Concomitant]
     Active Substance: IBUPROFEN

REACTIONS (5)
  - Sleep attacks [None]
  - Apnoea [None]
  - Dyspnoea [None]
  - Palpitations [None]
  - Joint swelling [None]
